FAERS Safety Report 20743650 (Version 3)
Quarter: 2022Q2

REPORT INFORMATION
  Report Type: Spontaneous
  Country: US (occurrence: US)
  Receive Date: 20220425
  Receipt Date: 20220526
  Transmission Date: 20220721
  Serious: Yes (Other)
  Sender: FDA-Public Use
  Company Number: US-CELLTRION INC.-2022US004926

PATIENT

DRUGS (40)
  1. TRUXIMA [Suspect]
     Active Substance: RITUXIMAB-ABBS
     Indication: Diffuse large B-cell lymphoma stage III
     Dosage: TRUXIMA 500 MG VIAL
  2. TRUXIMA [Suspect]
     Active Substance: RITUXIMAB-ABBS
     Dosage: TRUXIMA 100 MG VIALS (RECENT THERAPY DATES : 2/26 , 3/19, 4/11 ? NOT GIVEN DUE TO ABOVE CIRCUMSTANCE
  3. TRUXIMA [Suspect]
     Active Substance: RITUXIMAB-ABBS
     Dosage: 375 MG/M2
  4. CYCLOPHOSPHAMIDE\DOXORUBICIN\PREDNISONE\VINCRISTINE [Suspect]
     Active Substance: CYCLOPHOSPHAMIDE\DOXORUBICIN\PREDNISONE\VINCRISTINE
     Indication: Diffuse large B-cell lymphoma stage III
     Dosage: -CHOP 375MG/M2, CYTOXAN 750 MG/M2, DOXORUBICIN 50 MG/M2, VINCRISTINE 1.4 MG/M2)+ FULPHILA EVERY 21 D
     Route: 042
  5. BENADRYL [Suspect]
     Active Substance: DIPHENHYDRAMINE HYDROCHLORIDE
     Indication: Premedication
     Dosage: UNK
     Dates: start: 20220411
  6. ALBUTEROL SULFATE [Concomitant]
     Active Substance: ALBUTEROL SULFATE
     Dosage: 2.5 MG/3 ML (0.083 %) SOLUTION FOR NEBULIZATION
  7. ALLOPURINOL [Concomitant]
     Active Substance: ALLOPURINOL
     Dosage: 300 MILLIGRAM
  8. ASPIRIN [Concomitant]
     Active Substance: ASPIRIN
     Dosage: 81 MG
  9. ATORVASTATIN [Concomitant]
     Active Substance: ATORVASTATIN
     Dosage: 40 MG
  10. BACLOFEN [Concomitant]
     Active Substance: BACLOFEN
     Dosage: 100 MG
  11. BASAGLAR KWIKPEN [Concomitant]
     Active Substance: INSULIN GLARGINE
     Dosage: U-100 INSULIN 100 UNIT/ML (3 ML)
     Route: 058
  12. BUPROPION HYDROCHLORIDE [Concomitant]
     Active Substance: BUPROPION HYDROCHLORIDE
     Dosage: 150 MG TABLET12 HR SUSTAINED-RELEASE
  13. DOCUSATE SODIUM [Concomitant]
     Active Substance: DOCUSATE SODIUM
     Dosage: 100 MG
  14. EPIPEN [Concomitant]
     Active Substance: EPINEPHRINE
     Dosage: 0.3 MG/0.3 ML INJECTION AUTO?INJECTOR
  15. ESCITALOPRAM [Concomitant]
     Active Substance: ESCITALOPRAM OXALATE
     Dosage: 10 MILLIGRAM
  16. FLUTICASONE PROPIONATE [Concomitant]
     Active Substance: FLUTICASONE PROPIONATE
     Dosage: 50 MCG/ACTUATION BLISTER POWDER FOR INHALATION
  17. FUROSEMIDE [Concomitant]
     Active Substance: FUROSEMIDE
     Dosage: 40 MG
  18. GABAPENTIN [Concomitant]
     Active Substance: GABAPENTIN
     Dosage: 600 MG TABLET
  19. ACETAMINOPHEN\HYDROCODONE [Concomitant]
     Active Substance: ACETAMINOPHEN\HYDROCODONE
     Dosage: HYDROCODONE 5 MG-ACETAMINOPHEN 325 MG TABLET
  20. LASIX [Concomitant]
     Active Substance: FUROSEMIDE
     Dosage: 20 MG
  21. LASIX [Concomitant]
     Active Substance: FUROSEMIDE
     Dosage: 40 MG
  22. LEVETIRACETAM [Concomitant]
     Active Substance: LEVETIRACETAM
     Dosage: 500 MG
  23. LEVOTHYROXINE SODIUM [Concomitant]
     Active Substance: LEVOTHYROXINE SODIUM
     Dosage: 75 MICROGRAM
  24. MAGNESIUM OXIDE [Concomitant]
     Active Substance: MAGNESIUM OXIDE
     Dosage: 500 MILLIGRAM
  25. METFORMIN [Concomitant]
     Active Substance: METFORMIN HYDROCHLORIDE
     Dosage: 1000 MG
  26. NITROSTAT [Concomitant]
     Active Substance: NITROGLYCERIN
     Dosage: 0.4 MG SUBLINGUAL TABLET
  27. NOVOLOG [Concomitant]
     Active Substance: INSULIN ASPART
     Dosage: NOVOLOG U-100 INSULIN ASPART 100 UNIT/ML SUBCUTANEOUS SOLUTION
     Route: 058
  28. OMEPRAZOLE [Concomitant]
     Active Substance: OMEPRAZOLE
     Dosage: 20 MG
  29. ONDANSETRON HCL [Concomitant]
     Active Substance: ONDANSETRON HYDROCHLORIDE
     Dosage: 8 MG
  30. POTASSIUM CHLORIDE [Concomitant]
     Active Substance: POTASSIUM CHLORIDE
     Dosage: ER 10 MEQ CAPSULEEXTENDED RELEASE
  31. PREDNISONE [Concomitant]
     Active Substance: PREDNISONE
     Dosage: 20 MG
  32. PREDNISONE [Concomitant]
     Active Substance: PREDNISONE
     Dosage: 20 MG
  33. PROCHLORPERAZINE MALEATE [Concomitant]
     Active Substance: PROCHLORPERAZINE MALEATE
     Dosage: 10 MG
  34. REFRESH TEARS [Concomitant]
     Active Substance: CARBOXYMETHYLCELLULOSE SODIUM
     Dosage: 0.5 %
  35. ROPINIROLE [Concomitant]
     Active Substance: ROPINIROLE
     Dosage: 0.5 MG
  36. SYMBICORT [Concomitant]
     Active Substance: BUDESONIDE\FORMOTEROL FUMARATE DIHYDRATE
     Dosage: 160 MCG-4.5 MCG/ACTUATION HFA AEROSOL INHALER
  37. TRULICITY [Concomitant]
     Active Substance: DULAGLUTIDE
     Dosage: TRULICITY 0.75 MG/0.5 ML SUBCUTANEOUS PEN INJECTOR
     Route: 058
  38. VITAMIN D3 [Concomitant]
     Active Substance: CHOLECALCIFEROL
     Dosage: 125 MCG (5000 UNIT)
  39. WARFARIN [Concomitant]
     Active Substance: WARFARIN
     Dosage: 10 MG
  40. WARFARIN [Concomitant]
     Active Substance: WARFARIN
     Dosage: 4 MG

REACTIONS (4)
  - Altered state of consciousness [Unknown]
  - Blood glucose increased [Recovered/Resolved]
  - Muscular weakness [Unknown]
  - Intentional dose omission [Unknown]

NARRATIVE: CASE EVENT DATE: 20220411
